FAERS Safety Report 7931234-7 (Version None)
Quarter: 2011Q4

REPORT INFORMATION
  Report Type: 
  Country: None (occurrence: None)
  Receive Date: 20111121
  Receipt Date: 20111110
  Transmission Date: 20120403
  Serious: Yes (Hospitalization, Other)
  Sender: FDA-Public Use
  Company Number: US-BAYER-2011-075006

PATIENT
  Age: 34 Year
  Sex: Female

DRUGS (3)
  1. ZOMIG [Concomitant]
     Indication: MIGRAINE
     Dosage: UNK
     Dates: start: 20010101
  2. YAZ [Suspect]
     Dosage: UNK
     Dates: start: 20050101, end: 20090101
  3. YASMIN [Suspect]
     Dosage: UNK
     Dates: start: 20050101, end: 20090101

REACTIONS (4)
  - PAIN [None]
  - RENAL FAILURE [None]
  - INJURY [None]
  - HEART INJURY [None]
